FAERS Safety Report 23456911 (Version 1)
Quarter: 2024Q1

REPORT INFORMATION
  Report Type: Report from Study
  Country: US (occurrence: US)
  Receive Date: 20240130
  Receipt Date: 20240130
  Transmission Date: 20240409
  Serious: Yes (Death)
  Sender: FDA-Public Use
  Company Number: US-BAYER-2024A016164

PATIENT
  Age: 44 Year
  Sex: Female
  Weight: 126.98 kg

DRUGS (23)
  1. ADEMPAS [Suspect]
     Active Substance: RIOCIGUAT
     Indication: Pulmonary arterial hypertension
     Dosage: UNK
     Dates: start: 20200309
  2. ADEMPAS [Suspect]
     Active Substance: RIOCIGUAT
     Indication: Pulmonary arterial hypertension
     Dosage: 1.5 MG, TID
     Route: 048
  3. SEROQUEL [Concomitant]
     Active Substance: QUETIAPINE FUMARATE
  4. MELOXICAM [Concomitant]
     Active Substance: MELOXICAM
  5. BUSPIRONE HCL [Concomitant]
     Active Substance: BUSPIRONE HYDROCHLORIDE
  6. TYVASO DPI [Concomitant]
     Active Substance: TREPROSTINIL
  7. XIIDRA [Concomitant]
     Active Substance: LIFITEGRAST
  8. JAMP OMEPRAZOLE DR [Concomitant]
  9. FOLIC ACID [Concomitant]
     Active Substance: FOLIC ACID
  10. LAMICTAL ODT [Concomitant]
     Active Substance: LAMOTRIGINE
  11. OPSUMIT [Concomitant]
     Active Substance: MACITENTAN
  12. BACLOFEN [Concomitant]
     Active Substance: BACLOFEN
  13. LASIX [Concomitant]
     Active Substance: FUROSEMIDE
  14. MAGNESIUM [Concomitant]
     Active Substance: MAGNESIUM
  15. TRAMADOL HCL [Concomitant]
     Active Substance: TRAMADOL HYDROCHLORIDE
  16. DILTIAZEM [Concomitant]
     Active Substance: DILTIAZEM
  17. SPIRONOLACTONE [Concomitant]
     Active Substance: SPIRONOLACTONE
  18. BUMETANIDE [Concomitant]
     Active Substance: BUMETANIDE
  19. OXYGEN [Concomitant]
     Active Substance: OXYGEN
  20. PROMETHAZINE HYDROCHLORIDE [Concomitant]
     Active Substance: PROMETHAZINE HYDROCHLORIDE
  21. FERROUS GLUCONATE [Concomitant]
     Active Substance: FERROUS GLUCONATE
  22. VENTOLIN HFA [Concomitant]
     Active Substance: ALBUTEROL SULFATE
  23. TYLENOL [Concomitant]
     Active Substance: ACETAMINOPHEN

REACTIONS (1)
  - Death [Fatal]

NARRATIVE: CASE EVENT DATE: 20240125
